FAERS Safety Report 5655525-8 (Version None)
Quarter: 2008Q1

REPORT INFORMATION
  Report Type: 
  Country: None (occurrence: None)
  Receive Date: 20080307
  Receipt Date: 20080305
  Transmission Date: 20080703
  Serious: Yes (Death)
  Sender: FDA-Public Use
  Company Number: US-ASTRAZENECA-2008UW04548

PATIENT
  Age: 4 Year
  Sex: Male

DRUGS (3)
  1. ZD1839 [Suspect]
     Indication: NEUROBLASTOMA
     Route: 048
     Dates: start: 20061006, end: 20071026
  2. IRINOTECAN [Suspect]
     Indication: NEUROBLASTOMA
     Route: 042
     Dates: start: 20061006, end: 20071026
  3. NEULASTA [Concomitant]
     Route: 058

REACTIONS (2)
  - NEUTROPENIC COLITIS [None]
  - SEPSIS [None]
